FAERS Safety Report 21676050 (Version 1)
Quarter: 2022Q4

REPORT INFORMATION
  Report Type: Spontaneous
  Country: BR (occurrence: BR)
  Receive Date: 20221202
  Receipt Date: 20221202
  Transmission Date: 20230113
  Serious: Yes (Other)
  Sender: FDA-Public Use
  Company Number: BR-ABBVIE-20K-020-3706376-00

PATIENT
  Sex: Male
  Weight: 75 kg

DRUGS (12)
  1. HUMIRA [Suspect]
     Active Substance: ADALIMUMAB
     Indication: Arthritis
     Dosage: STRENGTH: 40 MILLIGRAM
     Route: 058
     Dates: start: 202011
  2. HUMIRA [Suspect]
     Active Substance: ADALIMUMAB
     Indication: Psoriatic arthropathy
     Dosage: STRENGTH: 40 MILLIGRAM
     Route: 058
  3. HUMIRA [Suspect]
     Active Substance: ADALIMUMAB
     Indication: Psoriasis
  4. FOLIC ACID DC [Concomitant]
     Indication: Vitamin supplementation
     Dosage: FORM STRENGTH: 5 MILLIGRAM
     Route: 048
     Dates: start: 202009
  5. AMITRIPTYLINE [Concomitant]
     Active Substance: AMITRIPTYLINE
     Indication: Antidepressant therapy
     Dosage: EVERY NIGHT/STRENGTH: 25 MILLIGRAM
     Route: 048
     Dates: start: 2018
  6. LOSARTAN [Concomitant]
     Active Substance: LOSARTAN
     Indication: Blood pressure measurement
     Dosage: EVERY MORNING/STRENGTH: 25 MILLIGRAM
     Route: 048
     Dates: start: 2011
  7. GLIFAGE [Concomitant]
     Active Substance: METFORMIN HYDROCHLORIDE
     Indication: Diabetes mellitus
     Dosage: FORM STRENGTH: 500 MILLIGRAM
  8. METOPROLOL SUCCINATE [Concomitant]
     Active Substance: METOPROLOL SUCCINATE
     Indication: Diuretic therapy
     Dosage: EVERY MORNING/FORM STRENGTH: 25 MILLIGRAM
     Route: 048
     Dates: start: 202009
  9. ROSUVASTATIN [Concomitant]
     Active Substance: ROSUVASTATIN
     Indication: Blood cholesterol abnormal
     Dosage: EVERY NIGHT/20 MILLIGRAM
     Route: 048
     Dates: start: 202009
  10. PREGABALIN AL [Concomitant]
     Indication: Neuralgia
     Dosage: EVERY NIGHT/FORM STRENGTH: 75 MILLIGRAM
     Route: 048
     Dates: start: 202009
  11. NOVOTRAM [Concomitant]
     Indication: Back pain
     Dosage: WHEN EXPERIENCED PAIN
     Route: 048
     Dates: start: 201905
  12. NEBIVOLOL [Concomitant]
     Active Substance: NEBIVOLOL
     Indication: Hypertension
     Dosage: 1 TABLET

REACTIONS (3)
  - Asthmatic crisis [Unknown]
  - Drug ineffective [Not Recovered/Not Resolved]
  - Psoriasis [Unknown]
